FAERS Safety Report 20072272 (Version 1)
Quarter: 2021Q4

REPORT INFORMATION
  Report Type: Spontaneous
  Country: US (occurrence: US)
  Receive Date: 20211116
  Receipt Date: 20211116
  Transmission Date: 20220303
  Serious: Yes (Other)
  Sender: FDA-Public Use
  Company Number: US-JNJFOC-20211118657

PATIENT
  Sex: Male

DRUGS (3)
  1. ZYTIGA [Suspect]
     Active Substance: ABIRATERONE ACETATE
     Indication: Product used for unknown indication
     Route: 048
  2. AMILORIDE/HYDROCHLOORTHIAZIDE A [Concomitant]
     Indication: Product used for unknown indication
  3. POTASSIUM [Concomitant]
     Active Substance: POTASSIUM
     Indication: Product used for unknown indication

REACTIONS (5)
  - Hypokalaemia [Unknown]
  - Acquired apparent mineralocorticoid excess [Unknown]
  - Hypertension [Unknown]
  - Generalised oedema [Unknown]
  - Weight increased [Unknown]
